FAERS Safety Report 6772939-3 (Version None)
Quarter: 2010Q2

REPORT INFORMATION
  Report Type: 
  Country: None (occurrence: None)
  Receive Date: 20100616
  Receipt Date: 20100608
  Transmission Date: 20101027
  Serious: Yes (Hospitalization, Other)
  Sender: FDA-Public Use
  Company Number: US-PFIZER INC-2010072103

PATIENT
  Sex: Female
  Weight: 76.2 kg

DRUGS (6)
  1. TETRACYCLINE HCL [Suspect]
     Indication: BACTERIAL INFECTION
     Dosage: UNK
     Dates: start: 20100511, end: 20100501
  2. METRONIDAZOLE [Suspect]
     Indication: BACTERIAL INFECTION
     Dosage: UNK
     Dates: start: 20100511, end: 20100501
  3. CLARITHROMYCIN [Suspect]
     Indication: BACTERIAL INFECTION
     Dosage: UNK
     Dates: start: 20100514, end: 20100501
  4. METOPROLOL [Concomitant]
     Indication: HYPERTENSION
     Dosage: 50 MG, 1X/DAY
  5. TRIAMTERENE AND HYDROCHLOROTHIAZIDE [Concomitant]
     Indication: DIURETIC THERAPY
     Dosage: 37.5/25 MG DAILY
  6. SUNITINIB MALATE [Concomitant]
     Indication: METASTASES TO PANCREAS
     Dosage: 50 MG, 1X/DAY
     Route: 048
     Dates: start: 20100427, end: 20100501

REACTIONS (5)
  - DECREASED APPETITE [None]
  - DEHYDRATION [None]
  - MALAISE [None]
  - WEIGHT DECREASED [None]
  - YELLOW SKIN [None]
